FAERS Safety Report 5377732-4 (Version None)
Quarter: 2007Q3

REPORT INFORMATION
  Report Type: 
  Country: None (occurrence: None)
  Receive Date: 20070703
  Receipt Date: 20070623
  Transmission Date: 20080115
  Serious: Yes (Other)
  Sender: FDA-Public Use
  Company Number: US-PFIZER INC-2007051256

PATIENT
  Sex: Male
  Weight: 77.1 kg

DRUGS (2)
  1. SUTENT [Suspect]
     Indication: METASTATIC RENAL CELL CARCINOMA
     Route: 048
     Dates: start: 20051214, end: 20070529
  2. GEFITINIB [Suspect]
     Route: 048
     Dates: start: 20051214, end: 20070529

REACTIONS (3)
  - MYOCARDIAL ISCHAEMIA [None]
  - NAIL DISORDER [None]
  - SILENT MYOCARDIAL INFARCTION [None]
